FAERS Safety Report 21493078 (Version 7)
Quarter: 2023Q1

REPORT INFORMATION
  Report Type: Spontaneous
  Country: US (occurrence: US)
  Receive Date: 20221021
  Receipt Date: 20230215
  Transmission Date: 20230418
  Serious: Yes (Hospitalization, Other)
  Sender: FDA-Public Use
  Company Number: US-BIOVITRUM-2022US11960

PATIENT
  Age: 2 Year
  Sex: Female
  Weight: 13 kg

DRUGS (18)
  1. SYNAGIS [Suspect]
     Active Substance: PALIVIZUMAB
     Indication: Premature baby
     Dosage: INTO THE MUSCLE
  2. SYNAGIS [Suspect]
     Active Substance: PALIVIZUMAB
     Indication: Low birth weight baby
     Dates: start: 20230103
  3. SEVELAMER CARBONATE [Concomitant]
     Active Substance: SEVELAMER CARBONATE
     Dosage: 0.8 G POWDER PACK
  4. PREVACID [Concomitant]
     Active Substance: LANSOPRAZOLE
     Dosage: 15 MG TABLET
  5. ASPIRIN [Concomitant]
     Active Substance: ASPIRIN
     Dosage: TAB CHEW
  6. TREPROSTINIL [Concomitant]
     Active Substance: TREPROSTINIL
     Dosage: 1 MG/ML VIAL
  7. DIURIL [CHLOROTHIAZIDE] [Concomitant]
     Dosage: 250 MG/5ML ORAL SUSP
  8. SPIRONOLACTONE [Concomitant]
     Active Substance: SPIRONOLACTONE
     Dosage: TABLET
  9. ATROVENT HFA [Concomitant]
     Active Substance: IPRATROPIUM BROMIDE
     Dosage: 17 MCG HFA AER AD.
  10. SYNAGIS [Suspect]
     Active Substance: PALIVIZUMAB
     Indication: Neonatal disorder
  11. ALBUTEROL SULFATE [Concomitant]
     Active Substance: ALBUTEROL SULFATE
  12. SYNAGIS [Suspect]
     Active Substance: PALIVIZUMAB
     Indication: Pulmonary arterial hypertension
  13. ALBUTEROL SULFATE [Concomitant]
     Active Substance: ALBUTEROL SULFATE
  14. SYNAGIS [Suspect]
     Active Substance: PALIVIZUMAB
     Indication: Ventricular septal defect
  15. CALCITRIOL [Concomitant]
     Active Substance: CALCITRIOL
  16. SYNAGIS [Suspect]
     Active Substance: PALIVIZUMAB
     Indication: Antiviral prophylaxis
  17. SILDENAFIL CITRATE [Concomitant]
     Active Substance: SILDENAFIL CITRATE
  18. EPINEPHRINE [Concomitant]
     Active Substance: EPINEPHRINE

REACTIONS (10)
  - Nasopharyngitis [Recovered/Resolved]
  - Infection [Recovered/Resolved]
  - Dyspnoea [Recovered/Resolved]
  - Cough [Recovered/Resolved]
  - Oxygen saturation decreased [Unknown]
  - Hypoxia [Unknown]
  - Pulmonary hypertension [Unknown]
  - Dependence on respirator [Unknown]
  - Pyrexia [Recovered/Resolved]
  - Chronic respiratory disease [Unknown]

NARRATIVE: CASE EVENT DATE: 20220926
